FAERS Safety Report 6614320-3 (Version None)
Quarter: 2010Q1

REPORT INFORMATION
  Report Type: 
  Country: None (occurrence: None)
  Receive Date: 20100303
  Receipt Date: 20100303
  Transmission Date: 20100710
  Serious: Yes (Hospitalization)
  Sender: FDA-Public Use
  Company Number: None

PATIENT
  Sex: Male
  Weight: 23.3 kg

DRUGS (6)
  1. CYTARABINE [Suspect]
     Dosage: 48 MG
  2. DAUNORUBICIN HCL [Suspect]
     Dosage: 42 MG
  3. DEXAMETHASONE [Suspect]
     Dosage: 200 MG
  4. HYDROCORTISONE [Suspect]
     Dosage: 24 MG
  5. METHOTREXATE [Suspect]
     Dosage: 24 MG
  6. VINCRISTINE SULFATE [Suspect]
     Dosage: 2.6 MG

REACTIONS (3)
  - DRUG INEFFECTIVE [None]
  - PNEUMOCYSTIS JIROVECI PNEUMONIA [None]
  - RESPIRATORY DISTRESS [None]
